FAERS Safety Report 7239650-6 (Version None)
Quarter: 2011Q1

REPORT INFORMATION
  Report Type: 
  Country: None (occurrence: None)
  Receive Date: 20110122
  Receipt Date: 20101004
  Transmission Date: 20110831
  Serious: No
  Sender: FDA-Public Use
  Company Number: US-ALLERGAN-1012748US

PATIENT
  Age: 44 Year

DRUGS (3)
  1. CYMBALTA [Suspect]
     Indication: DEPRESSION
     Dosage: UNK
  2. LATISSE [Suspect]
     Indication: PRODUCT USED FOR UNKNOWN INDICATION
     Dosage: 1 GTT, QHS
     Dates: start: 20101001
  3. ADVIL [Suspect]
     Indication: PAIN

REACTIONS (2)
  - MYDRIASIS [None]
  - DRUG ADMINISTERED AT INAPPROPRIATE SITE [None]
